FAERS Safety Report 7494657-9 (Version None)
Quarter: 2011Q2

REPORT INFORMATION
  Report Type: 
  Country: None (occurrence: None)
  Receive Date: 20110520
  Receipt Date: 20091122
  Transmission Date: 20111010
  Serious: Yes (Death, Other)
  Sender: FDA-Public Use
  Company Number: US-BAYER-200940652NA

PATIENT
  Age: 16 Month
  Sex: Male
  Weight: 5.3 kg

DRUGS (24)
  1. CEFZIL [Concomitant]
     Dosage: 125MG/ML
     Route: 048
     Dates: start: 20010925
  2. PLASMALYTE [GLUCOSE,POTASSIUM CHLORIDE] [Concomitant]
     Dosage: 50CC
     Route: 042
     Dates: start: 20020321
  3. SOLU-MEDROL [Concomitant]
     Dosage: 250 MG, UNK
     Route: 042
     Dates: start: 20020321
  4. TRASYLOL [Suspect]
     Indication: VENTRICULAR SEPTAL DEFECT REPAIR
     Route: 042
     Dates: start: 20010131
  5. LANOXIN [Concomitant]
     Dosage: 50 MCG/ML ELIXIR
     Route: 048
     Dates: start: 20010129
  6. PLATELETS [Concomitant]
     Dosage: 100
     Route: 042
     Dates: start: 20020321
  7. AMOXICILLIN [Concomitant]
     Dosage: 250MG/5ML
     Route: 048
     Dates: start: 20010702
  8. AUGMENTIN [Concomitant]
     Dosage: 125/5ML
     Route: 048
     Dates: start: 20010711
  9. AUGMENTIN [Concomitant]
     Dosage: 200 MG/5ML SUSPENSION
     Route: 048
     Dates: start: 20020108
  10. CEFTIN [Concomitant]
     Dosage: 250 MG/5ML ORAL SUSPENSION
     Route: 048
     Dates: start: 20020221
  11. ALDACTONE [Concomitant]
     Dosage: 5MG/ML SUSPENSION
     Route: 048
     Dates: start: 20001204
  12. LASIX [Concomitant]
     Dosage: 5
     Route: 042
     Dates: start: 20020321
  13. RED BLOOD CELLS [Concomitant]
     Dosage: UNK
     Route: 042
     Dates: start: 20020321
  14. HEPARIN [Concomitant]
     Dosage: 4000 U, UNK
     Route: 042
     Dates: start: 20020321
  15. DOPAMINE HCL [Concomitant]
     Dosage: 8
     Route: 042
     Dates: start: 20020321
  16. ALBUMIN (HUMAN) [Concomitant]
     Dosage: 2.5GM
     Route: 042
     Dates: start: 20010321
  17. MANNITOL [Concomitant]
     Dosage: 8 G, UNK
     Route: 042
     Dates: start: 20020321
  18. TRASYLOL [Suspect]
     Indication: SYSTEMIC-PULMONARY ARTERY SHUNT
  19. ZINACEF [Concomitant]
     Dosage: 150
     Route: 042
     Dates: start: 20020321
  20. TRASYLOL [Suspect]
     Indication: ATRIAL SEPTAL DEFECT
     Dosage: UNK
     Route: 042
     Dates: start: 20020321, end: 20020321
  21. OMNICEF [Concomitant]
     Dosage: 125MG/5ML SUSPENSION
     Route: 048
     Dates: start: 20020225
  22. FRESH FROZEN PLASMA [Concomitant]
     Dosage: UNK
     Route: 042
     Dates: start: 20020321
  23. TRASYLOL [Suspect]
     Indication: VALVULOPLASTY CARDIAC
  24. FUROSEMIDE [Concomitant]
     Dosage: 10MG/ML SOLUTION
     Route: 048
     Dates: start: 20010910

REACTIONS (14)
  - RENAL FAILURE [None]
  - DEATH [None]
  - MULTI-ORGAN FAILURE [None]
  - EMOTIONAL DISTRESS [None]
  - ANXIETY [None]
  - FEAR [None]
  - RENAL IMPAIRMENT [None]
  - STRESS [None]
  - ANHEDONIA [None]
  - INJURY [None]
  - RENAL INJURY [None]
  - BRAIN INJURY [None]
  - UNEVALUABLE EVENT [None]
  - PAIN [None]
